FAERS Safety Report 17451101 (Version 3)
Quarter: 2020Q1

REPORT INFORMATION
  Report Type: Spontaneous
  Country: FI (occurrence: FI)
  Receive Date: 20200224
  Receipt Date: 20200304
  Transmission Date: 20200409
  Serious: Yes (Hospitalization, Other)
  Sender: FDA-Public Use
  Company Number: FI-PFIZER INC-2020053710

PATIENT
  Age: 3 Year
  Sex: Male

DRUGS (2)
  1. DALACIN [Suspect]
     Active Substance: CLINDAMYCIN
     Indication: LYMPHADENITIS
     Dosage: 150 MG, 3X/DAY
     Dates: start: 20200203, end: 20200203
  2. DALACIN [Suspect]
     Active Substance: CLINDAMYCIN
     Dosage: ONCE, A PARTIAL DOSE
     Dates: start: 20200204, end: 20200204

REACTIONS (5)
  - Product preparation issue [Unknown]
  - Wrong technique in product usage process [Unknown]
  - Off label use [Unknown]
  - Oral discomfort [Unknown]
  - Product use issue [Unknown]

NARRATIVE: CASE EVENT DATE: 20200203
